FAERS Safety Report 4339588-8 (Version None)
Quarter: 2004Q1

REPORT INFORMATION
  Report Type: 
  Country: None (occurrence: None)
  Receive Date: 20040329
  Receipt Date: 20040107
  Transmission Date: 20041129
  Serious: No
  Sender: FDA-Public Use
  Company Number: 04P-163-0246664-00

PATIENT
  Age: 73 Year
  Sex: Female

DRUGS (15)
  1. HUMIRA [Suspect]
     Indication: RHEUMATOID ARTHRITIS
     Dosage: 40 MG, 1 IN 2 WK, SUBCUTANEOUS
     Route: 058
     Dates: start: 20031106
  2. CITALOPRAM HYDROCHLORIDE [Concomitant]
  3. PREDNISONE [Concomitant]
  4. LANSOPRAZOLE [Concomitant]
  5. ALPRAZOLAM [Concomitant]
  6. VICODIN [Concomitant]
  7. NYSTATIN [Concomitant]
  8. FUROSEMIDE [Concomitant]
  9. ASCORBIC ACID [Concomitant]
  10. OSICAL ULTRA [Concomitant]
  11. QREA CREAM [Concomitant]
  12. ERGOCALCIFEROL [Concomitant]
  13. IRON FREE WITH MINERALS MULTIVITAMIN [Concomitant]
  14. RISEDRONATE SODIUM [Concomitant]
  15. PERI-COLACE [Concomitant]

REACTIONS (2)
  - FLUSHING [None]
  - RASH [None]
